FAERS Safety Report 4530347-X (Version None)
Quarter: 2004Q4

REPORT INFORMATION
  Report Type: 
  Country: None (occurrence: None)
  Receive Date: 20041216
  Receipt Date: 20041216
  Transmission Date: 20050328
  Serious: No
  Sender: FDA-Public Use
  Company Number: None

PATIENT
  Sex: Male

DRUGS (4)
  1. RITALIN [Suspect]
     Dosage: ONE TABLET, TID
     Route: 048
  2. RITALIN [Suspect]
     Dosage: ONE TAB, TID
     Route: 048
  3. BUSPAR [Suspect]
     Dosage: ONE TAB, HS
     Route: 048
  4. CATAPRES [Suspect]
     Dosage: 0.1 MG

REACTIONS (2)
  - AGITATION [None]
  - PHARMACEUTICAL PRODUCT COMPLAINT [None]
